FAERS Safety Report 8717044 (Version 3)
Quarter: 2012Q4

REPORT INFORMATION
  Report Type: 
  Country: NG (occurrence: NG)
  Receive Date: 20120810
  Receipt Date: 20120828
  Transmission Date: 20130627
  Serious: Yes (Death)
  Sender: FDA-Public Use
  Company Number: NG-PFIZER INC-2012191468

PATIENT
  Age: 31 Year
  Sex: Female

DRUGS (5)
  1. VFEND [Suspect]
     Indication: ASPERGILLOSIS
     Dosage: UNK
     Route: 042
     Dates: start: 20120802, end: 20120803
  2. ITRACONAZOLE [Concomitant]
     Route: 048
  3. FLUCONAZOLE [Concomitant]
     Dosage: UNK
     Route: 048
     Dates: end: 201207
  4. MEROPENEM [Concomitant]
     Dosage: UNK
     Route: 042
     Dates: start: 20120803, end: 20120803
  5. CYCLOPHOSPHAMIDE [Concomitant]

REACTIONS (1)
  - Fungal infection [Fatal]
